FAERS Safety Report 11587677 (Version 3)
Quarter: 2018Q4

REPORT INFORMATION
  Report Type: Spontaneous
  Country: FR (occurrence: FR)
  Receive Date: 20151001
  Receipt Date: 20181002
  Transmission Date: 20190204
  Serious: Yes (Hospitalization, Other)
  Sender: FDA-Public Use
  Company Number: FR-ASTRAZENECA-2015SE92575

PATIENT
  Age: 851 Month
  Sex: Female

DRUGS (10)
  1. BIPRETERAX [Suspect]
     Active Substance: INDAPAMIDE\PERINDOPRIL
     Dosage: 5 + 1.25 MG DAILY
     Route: 048
  2. PROGRAF [Suspect]
     Active Substance: TACROLIMUS\TACROLIMUS ANHYDROUS
     Route: 048
     Dates: start: 201311
  3. TAHOR [Suspect]
     Active Substance: ATORVASTATIN CALCIUM
     Route: 048
     Dates: end: 20150902
  4. CELLCEPT [Suspect]
     Active Substance: MYCOPHENOLATE MOFETIL\MYCOPHENOLATE MOFETIL HYDROCHLORIDE
     Route: 048
  5. DOLIPRANE [Concomitant]
     Active Substance: ACETAMINOPHEN
     Indication: HEADACHE
  6. FLIXONASE [Concomitant]
     Active Substance: FLUTICASONE PROPIONATE
  7. INEXIUM [Suspect]
     Active Substance: ESOMEPRAZOLE
     Route: 048
     Dates: end: 20150903
  8. ALPRAZOLAM. [Concomitant]
     Active Substance: ALPRAZOLAM
  9. NEORAL [Suspect]
     Active Substance: CYCLOSPORINE
     Route: 048
  10. TEMERIT [Suspect]
     Active Substance: NEBIVOLOL
     Route: 048

REACTIONS (11)
  - Anxiety [Unknown]
  - Ataxia [Unknown]
  - Central nervous system lesion [Unknown]
  - Headache [Unknown]
  - Migraine [Not Recovered/Not Resolved]
  - Paraesthesia [Not Recovered/Not Resolved]
  - Overdose [Recovered/Resolved]
  - Pain [Not Recovered/Not Resolved]
  - Peripheral arterial occlusive disease [Unknown]
  - Sleep disorder [Recovering/Resolving]
  - Pruritus [Unknown]

NARRATIVE: CASE EVENT DATE: 201404
